FAERS Safety Report 11628585 (Version 1)
Quarter: 2015Q4

REPORT INFORMATION
  Report Type: Spontaneous
  Country: US (occurrence: None)
  Receive Date: 20151013
  Receipt Date: 20151013
  Transmission Date: 20160304
  Serious: Yes (Other)
  Sender: FDA-Public Use
  Company Number: None

PATIENT
  Age: 49 Year
  Sex: Male
  Weight: 86.18 kg

DRUGS (7)
  1. TYLENOL PM [Concomitant]
     Active Substance: ACETAMINOPHEN\DIPHENHYDRAMINE
  2. HYDROCODONE/APAP [Concomitant]
     Active Substance: ACETAMINOPHEN\HYDROCODONE BITARTRATE
  3. LISINOPRIL. [Concomitant]
     Active Substance: LISINOPRIL
  4. PRAVASTATIN [Concomitant]
     Active Substance: PRAVASTATIN\PRAVASTATIN SODIUM
  5. ATENOLOL. [Concomitant]
     Active Substance: ATENOLOL
  6. ZOLPIDEM [Suspect]
     Active Substance: ZOLPIDEM\ZOLPIDEM TARTRATE
     Indication: INSOMNIA
     Dosage: T1T PO HS AT BEDTIME TAKEN BY MOUTH
     Route: 048
  7. MULTIVITAMINE [Concomitant]

REACTIONS (2)
  - Imprisonment [None]
  - Somnambulism [None]

NARRATIVE: CASE EVENT DATE: 20151006
